FAERS Safety Report 11391794 (Version 1)
Quarter: 2015Q3

REPORT INFORMATION
  Report Type: Spontaneous
  Country: US (occurrence: None)
  Receive Date: 20150814
  Receipt Date: 20150814
  Transmission Date: 20151125
  Serious: Yes (Other)
  Sender: FDA-Public Use
  Company Number: 2015SMT00245

PATIENT
  Age: 62 Year
  Sex: Female
  Weight: 90.7 kg

DRUGS (5)
  1. UNSPECIFIED ^INHALED STEROID^ (UNSPECIFIED ^INHALED STEROID^) [Concomitant]
  2. LOSARTAN (LOSARTAN) [Concomitant]
     Active Substance: LOSARTAN
  3. REGRANEX [Suspect]
     Active Substance: BECAPLERMIN
     Indication: POSTOPERATIVE WOUND COMPLICATION
     Dosage: TWICE, TOPICAL
     Route: 061
     Dates: start: 20150730, end: 20150731
  4. PRAVASTATIN [Concomitant]
     Active Substance: PRAVASTATIN\PRAVASTATIN SODIUM
  5. TRIAMTERENE (TRIAMTERENE) [Concomitant]
     Active Substance: TRIAMTERENE

REACTIONS (4)
  - Chest pain [None]
  - Insomnia [None]
  - Chest discomfort [None]
  - Off label use [None]

NARRATIVE: CASE EVENT DATE: 20150730
